FAERS Safety Report 26109770 (Version 1)
Quarter: 2025Q4

REPORT INFORMATION
  Report Type: Spontaneous
  Country: CN (occurrence: CN)
  Receive Date: 20251201
  Receipt Date: 20251201
  Transmission Date: 20260117
  Serious: Yes (Hospitalization, Other)
  Sender: PFIZER
  Company Number: CN-PFIZER INC-PV202500136447

PATIENT
  Age: 18 Day
  Sex: Male
  Weight: 1.41 kg

DRUGS (4)
  1. CEFOPERAZONE SODIUM\SULBACTAM SODIUM [Suspect]
     Active Substance: CEFOPERAZONE SODIUM\SULBACTAM SODIUM
     Indication: Anti-infective therapy
     Dosage: 0.09 G, 2X/DAY
     Route: 041
     Dates: start: 20251001, end: 20251016
  2. MEROPENEM [Suspect]
     Active Substance: MEROPENEM
     Indication: Anti-infective therapy
     Dosage: 0.04 G, 3X/DAY
     Route: 041
     Dates: start: 20251019, end: 20251102
  3. SODIUM CHLORIDE [Concomitant]
     Active Substance: SODIUM CHLORIDE
     Indication: Vehicle solution use
     Dosage: 5 ML, 2X/DAY
     Route: 041
     Dates: start: 20251001, end: 20251016
  4. SODIUM CHLORIDE [Concomitant]
     Active Substance: SODIUM CHLORIDE
     Dosage: 3 ML, 3X/DAY
     Route: 041
     Dates: start: 20251019, end: 20251102

REACTIONS (2)
  - Neutropenia neonatal [Recovering/Resolving]
  - Product administered to patient of inappropriate age [Unknown]

NARRATIVE: CASE EVENT DATE: 20251019
